FAERS Safety Report 8991127 (Version 2)
Quarter: 2013Q1

REPORT INFORMATION
  Report Type: Spontaneous
  Country: US (occurrence: None)
  Receive Date: 20121219
  Receipt Date: 20130116
  Transmission Date: 20140127
  Serious: Yes (Death, Other)
  Sender: FDA-Public Use
  Company Number: TPA2012A09806

PATIENT
  Age: 77 Year
  Sex: Female

DRUGS (4)
  1. ACTOS [Suspect]
     Indication: TYPE 2 DIABETES MELLITUS
     Dates: start: 20070223, end: 20071130
  2. METFORMIN (METFORMIN) [Concomitant]
  3. LGIPIZIDE (GLIPIZIDE) [Concomitant]
  4. JANUVIA (SITAGLIPTIN PHOSPHATE) [Concomitant]

REACTIONS (1)
  - Bladder cancer [None]
